FAERS Safety Report 7607767-X (Version None)
Quarter: 2011Q3

REPORT INFORMATION
  Report Type: 
  Country: None (occurrence: None)
  Receive Date: 20110713
  Receipt Date: 20110603
  Transmission Date: 20111222
  Serious: Yes (Other)
  Sender: FDA-Public Use
  Company Number: PHHY2011CA49798

PATIENT

DRUGS (1)
  1. ALISKIREN [Suspect]
     Dosage: UNK

REACTIONS (5)
  - LOW DENSITY LIPOPROTEIN INCREASED [None]
  - BLOOD TRIGLYCERIDES INCREASED [None]
  - HERNIA [None]
  - PHYSICAL DISABILITY [None]
  - WEIGHT INCREASED [None]
